FAERS Safety Report 5625507-0 (Version None)
Quarter: 2008Q1

REPORT INFORMATION
  Report Type: 
  Country: None (occurrence: None)
  Receive Date: 20080211
  Receipt Date: 20080131
  Transmission Date: 20080703
  Serious: Yes (Other)
  Sender: FDA-Public Use
  Company Number: 2008AP000351

PATIENT
  Age: 24 Year
  Sex: Female

DRUGS (4)
  1. PAROXETINE HCL [Suspect]
     Indication: PANIC ATTACK
     Dosage: 2.5 ML; ORAL+LIQ; QD;  20 MG; TAB;PO; QD
     Route: 048
     Dates: start: 20011014
  2. PAROXETINE HCL [Suspect]
     Indication: PANIC ATTACK
     Dosage: 2.5 ML; ORAL+LIQ; QD;  20 MG; TAB;PO; QD
     Route: 048
     Dates: start: 20031121
  3. PAROXETINE HCL [Suspect]
     Indication: PANIC ATTACK
     Dosage: 2.5 ML; ORAL+LIQ; QD;  20 MG; TAB;PO; QD
     Route: 048
     Dates: start: 20040725
  4. PAROXETINE HCL [Suspect]
     Indication: PANIC ATTACK
     Dosage: 2.5 ML; ORAL+LIQ; QD;  20 MG; TAB;PO; QD
     Route: 048
     Dates: start: 20050919

REACTIONS (16)
  - AGGRESSION [None]
  - AGITATION [None]
  - ANXIETY [None]
  - CRYING [None]
  - DEPRESSION [None]
  - DISTURBANCE IN ATTENTION [None]
  - HYPERHIDROSIS [None]
  - MEMORY IMPAIRMENT [None]
  - MOOD SWINGS [None]
  - NAUSEA [None]
  - NIGHTMARE [None]
  - SLEEP DISORDER [None]
  - SUICIDAL IDEATION [None]
  - TEARFULNESS [None]
  - VOMITING [None]
  - WITHDRAWAL SYNDROME [None]
